FAERS Safety Report 4295709-7 (Version None)
Quarter: 2004Q1

REPORT INFORMATION
  Report Type: 
  Country: None (occurrence: None)
  Receive Date: 20040216
  Receipt Date: 20040211
  Transmission Date: 20041129
  Serious: Yes (Other)
  Sender: FDA-Public Use
  Company Number: DE-GLAXOSMITHKLINE-D0043118A

PATIENT
  Age: 63 Year
  Sex: Female
  Weight: 67 kg

DRUGS (2)
  1. ZEFFIX [Suspect]
     Indication: HEPATITIS B
     Dosage: 100MG UNKNOWN
     Route: 048
     Dates: start: 20030201, end: 20030818
  2. CELLCEPT [Suspect]
     Dosage: 1TAB TWICE PER DAY
     Route: 048
     Dates: start: 20030401, end: 20030723

REACTIONS (1)
  - AGRANULOCYTOSIS [None]
